FAERS Safety Report 8998922 (Version 1)
Quarter: 2013Q1

REPORT INFORMATION
  Report Type: Spontaneous
  Country: GB (occurrence: GB)
  Receive Date: 20130103
  Receipt Date: 20130103
  Transmission Date: 20140127
  Serious: Yes (Other)
  Sender: FDA-Public Use
  Company Number: GB-PFIZER INC-2013000882

PATIENT
  Sex: 0

DRUGS (1)
  1. EPLERENONE [Suspect]
     Indication: CARDIAC FAILURE
     Route: 048

REACTIONS (1)
  - Myalgia [Unknown]
